FAERS Safety Report 8529692-2 (Version None)
Quarter: 2012Q3

REPORT INFORMATION
  Report Type: 
  Country: None (occurrence: None)
  Receive Date: 20120723
  Receipt Date: 20120711
  Transmission Date: 20120928
  Serious: Yes (Hospitalization, Other)
  Sender: FDA-Public Use
  Company Number: IL-CELGENEUS-083-21880-12060815

PATIENT
  Sex: Female

DRUGS (4)
  1. REVLIMID [Suspect]
     Indication: MULTIPLE MYELOMA
     Dosage: 10 MILLIGRAM
     Route: 048
     Dates: start: 20111117, end: 20120603
  2. LEVOTHYROXINE SODIUM [Concomitant]
     Dosage: 75 MILLIGRAM
     Route: 065
     Dates: start: 19950101
  3. ZARZIO [Concomitant]
     Dosage: 1 FL
     Route: 065
     Dates: start: 20120307, end: 20120603
  4. ACETYLSALICYLIC ACID SRT [Concomitant]
     Dosage: 100 MILLIGRAM
     Route: 065
     Dates: start: 20110314, end: 20120603

REACTIONS (1)
  - MALIGNANT PERITONEAL NEOPLASM [None]
